FAERS Safety Report 23906571 (Version 2)
Quarter: 2024Q2

REPORT INFORMATION
  Report Type: Report from Study
  Country: US (occurrence: US)
  Receive Date: 20240528
  Receipt Date: 20240603
  Transmission Date: 20240716
  Serious: Yes (Hospitalization, Other)
  Sender: FDA-Public Use
  Company Number: US-ABBVIE-5761893

PATIENT
  Sex: Female
  Weight: 83 kg

DRUGS (2)
  1. VENCLEXTA [Suspect]
     Active Substance: VENETOCLAX
     Indication: Myelodysplastic syndrome
     Dosage: FORM STRENGTH UNITS: 100 MILLIGRAM
     Route: 048
     Dates: start: 20240406
  2. VENCLEXTA [Suspect]
     Active Substance: VENETOCLAX
     Indication: Myelodysplastic syndrome
     Dosage: FORM STRENGTH UNITS: 100 MILLIGRAM
     Route: 048
     Dates: start: 20240520

REACTIONS (10)
  - Obstruction gastric [Not Recovered/Not Resolved]
  - Head injury [Recovered/Resolved]
  - Blood potassium decreased [Recovering/Resolving]
  - Diarrhoea [Unknown]
  - Injection site pain [Unknown]
  - Vomiting [Recovered/Resolved]
  - Full blood count decreased [Unknown]
  - Abdominal pain upper [Recovering/Resolving]
  - Cerebral haemorrhage [Recovering/Resolving]
  - Confusional state [Recovered/Resolved]

NARRATIVE: CASE EVENT DATE: 20240101
